FAERS Safety Report 5933867-6 (Version None)
Quarter: 2008Q4

REPORT INFORMATION
  Report Type: 
  Country: None (occurrence: None)
  Receive Date: 20081029
  Receipt Date: 20081018
  Transmission Date: 20090506
  Serious: Yes (Other)
  Sender: FDA-Public Use
  Company Number: GB-ROCHE-592309

PATIENT
  Sex: Male
  Weight: 101 kg

DRUGS (3)
  1. ORLISTAT [Suspect]
     Indication: OBESITY
     Route: 048
     Dates: start: 20080620
  2. IBUPROFEN TABLETS [Concomitant]
     Indication: BACK DISORDER
     Dosage: UP TO 2-3 TIMES DAIILY
     Route: 048
  3. ACETAMINOPHEN W/ CODEINE [Concomitant]
     Indication: BACK DISORDER
     Dosage: 8/500MG WHEN NEEDED
     Route: 048

REACTIONS (2)
  - TESTICULAR CYST [None]
  - TESTICULAR PAIN [None]
